FAERS Safety Report 14466767 (Version 1)
Quarter: 2018Q1

REPORT INFORMATION
  Report Type: Spontaneous
  Country: US (occurrence: US)
  Receive Date: 20180130
  Receipt Date: 20180130
  Transmission Date: 20180509
  Serious: No
  Sender: FDA-Public Use
  Company Number: None

PATIENT
  Sex: Female

DRUGS (1)
  1. REPATHA [Suspect]
     Active Substance: EVOLOCUMAB
     Indication: HYPERLIPIDAEMIA
     Dosage: 140MG Q14D SQ
     Route: 058
     Dates: start: 20170719

REACTIONS (3)
  - Injection site bruising [None]
  - Rhinorrhoea [None]
  - Constipation [None]
